FAERS Safety Report 6715570-8 (Version None)
Quarter: 2010Q2

REPORT INFORMATION
  Report Type: 
  Country: None (occurrence: None)
  Receive Date: 20100507
  Receipt Date: 20100428
  Transmission Date: 20101027
  Serious: Yes (Hospitalization, Other)
  Sender: FDA-Public Use
  Company Number: PHHY2010BR07850

PATIENT
  Sex: Female

DRUGS (3)
  1. TEGRETOL-XR [Suspect]
     Indication: TRIGEMINAL NEURALGIA
     Dosage: 400 MG, UNK
     Route: 048
     Dates: start: 19800101
  2. PROPRANOLOL [Concomitant]
     Indication: HYPERTENSION
     Dosage: 1 DF/DAY
     Route: 048
  3. SERTRALINE [Concomitant]
     Indication: DEPRESSION
     Dosage: 1 DF/DAY
     Route: 048
     Dates: start: 20050101

REACTIONS (15)
  - APATHY [None]
  - APPLICATION SITE MASS [None]
  - APPLICATION SITE REACTION [None]
  - CEREBRAL HAEMORRHAGE [None]
  - DEMENTIA ALZHEIMER'S TYPE [None]
  - DEPRESSED MOOD [None]
  - DEPRESSION [None]
  - ERYTHEMA [None]
  - HYPERTENSION [None]
  - MALAISE [None]
  - MEMORY IMPAIRMENT [None]
  - MOVEMENT DISORDER [None]
  - PRURITUS [None]
  - SPEECH DISORDER [None]
  - VASCULAR RUPTURE [None]
